FAERS Safety Report 13094867 (Version 1)
Quarter: 2017Q1

REPORT INFORMATION
  Report Type: Spontaneous
  Country: US (occurrence: US)
  Receive Date: 20170106
  Receipt Date: 20170106
  Transmission Date: 20170428
  Serious: Yes (Other)
  Sender: FDA-Public Use
  Company Number: US-ABBVIE-16P-163-1673453-00

PATIENT
  Sex: Female

DRUGS (1)
  1. CREON [Suspect]
     Active Substance: PANCRELIPASE AMYLASE\PANCRELIPASE LIPASE\PANCRELIPASE PROTEASE
     Indication: PRODUCT USED FOR UNKNOWN INDICATION
     Route: 048

REACTIONS (6)
  - Cholecystectomy [Unknown]
  - Cholelithiasis [Unknown]
  - Weight decreased [Unknown]
  - Pain [Unknown]
  - Constipation [Unknown]
  - Weight gain poor [Unknown]

NARRATIVE: CASE EVENT DATE: 2016
